FAERS Safety Report 5679845-6 (Version None)
Quarter: 2008Q1

REPORT INFORMATION
  Report Type: 
  Country: None (occurrence: None)
  Receive Date: 20080324
  Receipt Date: 20080310
  Transmission Date: 20080703
  Serious: No
  Sender: FDA-Public Use
  Company Number: B0513174A

PATIENT
  Age: 11 Month
  Sex: Female
  Weight: 8.1647 kg

DRUGS (1)
  1. ACYCLOVIR [Suspect]
     Indication: MENINGOENCEPHALITIS HERPETIC
     Dosage: 30 MG/KG PER DAY

REACTIONS (4)
  - DRUG RESISTANCE [None]
  - DYSKINESIA [None]
  - ENCEPHALOMALACIA [None]
  - GRAND MAL CONVULSION [None]
